FAERS Safety Report 11995379 (Version 1)
Quarter: 2016Q1

REPORT INFORMATION
  Report Type: Spontaneous
  Country: US (occurrence: US)
  Receive Date: 20160203
  Receipt Date: 20160203
  Transmission Date: 20160526
  Serious: Yes (Hospitalization)
  Sender: FDA-Public Use
  Company Number: US-SMITH AND NEPHEW, INC-2016SMT00073

PATIENT
  Age: 68 Year
  Sex: Male
  Weight: 181.41 kg

DRUGS (20)
  1. NOVOLOG [Concomitant]
     Active Substance: INSULIN ASPART
     Dosage: 3 DOSAGE UNITS, 3X/DAY PER SLIDING SCALE
  2. PANTOPRAZOLE [Concomitant]
     Active Substance: PANTOPRAZOLE SODIUM
     Dosage: 40 MG, 1X/DAY
  3. ZOFRAN [Concomitant]
     Active Substance: ONDANSETRON HYDROCHLORIDE
     Dosage: UNK, AS NEEDED
  4. ULORIC [Concomitant]
     Active Substance: FEBUXOSTAT
     Dosage: 40 MG, 1X/DAY
  5. ASPIRIN. [Concomitant]
     Active Substance: ASPIRIN
     Dosage: 81 MG, 1X/DAY
  6. NOVOLOG [Concomitant]
     Active Substance: INSULIN ASPART
     Dosage: UNK, AS NEEDED
  7. XARELTO [Concomitant]
     Active Substance: RIVAROXABAN
     Dosage: 10 MG, 1X/DAY
  8. COLCHICINE. [Concomitant]
     Active Substance: COLCHICINE
     Dosage: 0.6 MG, 1X/DAY
  9. VITAMIN D [Concomitant]
     Active Substance: CHOLECALCIFEROL
  10. ATORVASTATIN [Concomitant]
     Active Substance: ATORVASTATIN
     Dosage: 80 MG, 1X/DAY
  11. REGRANEX [Suspect]
     Active Substance: BECAPLERMIN
     Indication: SKIN ULCER
     Dosage: UNK UNK, ONCE
     Route: 061
     Dates: start: 20160119, end: 20160119
  12. TACROLIMUS. [Concomitant]
     Active Substance: TACROLIMUS
     Dosage: 5 MG, 1X/DAY
  13. MECLIZINE [Concomitant]
     Active Substance: MECLIZINE HYDROCHLORIDE
     Dosage: 25 MG, AS NEEDED
  14. PREDNISONE. [Concomitant]
     Active Substance: PREDNISONE
     Dosage: 10 MG, 1X/DAY
  15. MYCOPHENOLATE [Concomitant]
     Active Substance: MYCOPHENOLIC ACID
     Dosage: 500 MG, 1X/DAY
  16. METOPROLOL. [Concomitant]
     Active Substance: METOPROLOL
     Dosage: 100 MG, 2X/DAY
  17. LISINOPRIL. [Concomitant]
     Active Substance: LISINOPRIL
     Dosage: 5 MG, 1X/DAY
  18. TAMSULOSIN [Concomitant]
     Active Substance: TAMSULOSIN
     Dosage: 0.4 MG, 1X/DAY
  19. MIRALAX [Concomitant]
     Active Substance: POLYETHYLENE GLYCOL 3350
     Dosage: UNK, 1X/DAY
  20. LASIX [Concomitant]
     Active Substance: FUROSEMIDE
     Dosage: 40 MG, EVERY 48 HOURS

REACTIONS (5)
  - Malaise [Unknown]
  - Dysarthria [Unknown]
  - Dehydration [Unknown]
  - Grip strength decreased [Unknown]
  - Speech disorder [Unknown]

NARRATIVE: CASE EVENT DATE: 20160119
